FAERS Safety Report 21194629 (Version 2)
Quarter: 2022Q3

REPORT INFORMATION
  Report Type: Report from Study
  Country: CA (occurrence: CA)
  Receive Date: 20220810
  Receipt Date: 20220811
  Transmission Date: 20221027
  Serious: Yes (Hospitalization)
  Sender: FDA-Public Use
  Company Number: CA-China IPSEN SC-2021-16954

PATIENT
  Age: 47 Year
  Sex: Female
  Weight: 66.1 kg

DRUGS (12)
  1. LANREOTIDE ACETATE [Suspect]
     Active Substance: LANREOTIDE ACETATE
     Indication: Neuroendocrine tumour
     Dosage: 120 MG EVERY MONTH
     Route: 058
     Dates: start: 20200414, end: 20210515
  2. LANREOTIDE ACETATE [Suspect]
     Active Substance: LANREOTIDE ACETATE
     Dosage: 120 MG EVERY TWO WEEKS
     Route: 058
     Dates: start: 20210528, end: 20210723
  3. LANREOTIDE ACETATE [Suspect]
     Active Substance: LANREOTIDE ACETATE
     Dosage: 120 MG EVERY THREE WEEKS
     Route: 058
     Dates: start: 20210824, end: 2021
  4. LANREOTIDE ACETATE [Suspect]
     Active Substance: LANREOTIDE ACETATE
     Dosage: 120 MG EVERY THREE WEEKS
     Route: 058
     Dates: start: 2021, end: 20211210
  5. LANREOTIDE ACETATE [Suspect]
     Active Substance: LANREOTIDE ACETATE
     Dosage: 120 MG EVERY THREE WEEKS
     Route: 058
     Dates: start: 20220212
  6. LASIX [Concomitant]
     Active Substance: FUROSEMIDE
     Indication: Blood pressure abnormal
  7. METOPROLOL [Concomitant]
     Active Substance: METOPROLOL
     Indication: Blood pressure abnormal
     Dosage: TWICE A DAY
  8. ASPIRIN [Concomitant]
     Active Substance: ASPIRIN
     Indication: Blood pressure abnormal
  9. HYDROMORPHONE [Concomitant]
     Active Substance: HYDROMORPHONE
     Indication: Back pain
     Dosage: PRN NO MORE THAN TWICE A DAY
  10. PRISTIQ EXTENDED-RELEASE [Concomitant]
     Active Substance: DESVENLAFAXINE SUCCINATE
     Indication: Pain
  11. DESVENLAFAXINE [Concomitant]
     Active Substance: DESVENLAFAXINE
     Indication: Pain
  12. METHADONE [Concomitant]
     Active Substance: METHADONE HYDROCHLORIDE

REACTIONS (27)
  - Dyspnoea [Unknown]
  - Pulse abnormal [Unknown]
  - Asthenia [Unknown]
  - Supraventricular tachycardia [Recovered/Resolved]
  - Cardiac disorder [Unknown]
  - Back pain [Not Recovered/Not Resolved]
  - Hospitalisation [Unknown]
  - Abdominal distension [Not Recovered/Not Resolved]
  - Flatulence [Not Recovered/Not Resolved]
  - Discomfort [Not Recovered/Not Resolved]
  - Mood swings [Not Recovered/Not Resolved]
  - Depression [Not Recovered/Not Resolved]
  - Constipation [Not Recovered/Not Resolved]
  - Diarrhoea [Not Recovered/Not Resolved]
  - Fatigue [Not Recovered/Not Resolved]
  - Bowel movement irregularity [Not Recovered/Not Resolved]
  - Malaise [Recovered/Resolved]
  - Illness [Unknown]
  - Memory impairment [Unknown]
  - Condition aggravated [Not Recovered/Not Resolved]
  - Abdominal distension [Not Recovered/Not Resolved]
  - Adverse event [Unknown]
  - Off label use [Unknown]
  - Off label use [Unknown]
  - Product storage error [Unknown]
  - Inappropriate schedule of product administration [Unknown]
  - Off label use [Unknown]

NARRATIVE: CASE EVENT DATE: 20210101
